FAERS Safety Report 23414996 (Version 1)
Quarter: 2024Q1

REPORT INFORMATION
  Report Type: Spontaneous
  Country: US (occurrence: US)
  Receive Date: 20240118
  Receipt Date: 20240118
  Transmission Date: 20240410
  Serious: No
  Sender: FDA-Public Use
  Company Number: US-SANOFI-01900847

PATIENT
  Sex: Female
  Weight: 41 kg

DRUGS (1)
  1. DUPIXENT [Suspect]
     Active Substance: DUPILUMAB
     Indication: Chronic obstructive pulmonary disease
     Dosage: LOADING DOSE

REACTIONS (6)
  - Balance disorder [Unknown]
  - Vertigo [Not Recovered/Not Resolved]
  - Oral herpes [Unknown]
  - Conjunctivitis [Unknown]
  - Off label use [Unknown]
  - Drug effective for unapproved indication [Unknown]
